FAERS Safety Report 17035955 (Version 2)
Quarter: 2019Q4

REPORT INFORMATION
  Report Type: Spontaneous
  Country: IN (occurrence: IN)
  Receive Date: 20191115
  Receipt Date: 20191209
  Transmission Date: 20200122
  Serious: Yes (Hospitalization, Other)
  Sender: FDA-Public Use
  Company Number: IN-ACCORD-160380

PATIENT
  Age: 54 Year
  Sex: Male

DRUGS (6)
  1. SODIUM CHLORIDE. [Concomitant]
     Active Substance: SODIUM CHLORIDE
     Indication: MEDICATION DILUTION
     Dosage: PACLITAXEL INFUSION (260 MG DILUTED IN 300 ML NORMAL SALINE)
  2. RANITIDINE. [Interacting]
     Active Substance: RANITIDINE
     Indication: PREMEDICATION
     Route: 042
  3. CARBOPLATIN. [Concomitant]
     Active Substance: CARBOPLATIN
     Indication: LUNG SQUAMOUS CELL CARCINOMA STAGE IV
     Dosage: AUC-5 INJECTION AT A DOSE OF 450MG
  4. PACLITAXEL/PACLITAXEL LIPOSOME [Suspect]
     Active Substance: PACLITAXEL
     Indication: LUNG SQUAMOUS CELL CARCINOMA STAGE IV
     Dosage: 260 MG DILUTED IN 300 ML NORMAL SALINE
  5. ONDANSETRON [Interacting]
     Active Substance: ONDANSETRON
     Indication: PREMEDICATION
     Dosage: 8 MG
     Route: 042
  6. DEXAMETHASONE. [Concomitant]
     Active Substance: DEXAMETHASONE
     Indication: PREMEDICATION
     Route: 042

REACTIONS (2)
  - Cardiogenic shock [Recovered/Resolved]
  - Drug interaction [Unknown]
